FAERS Safety Report 25485449 (Version 2)
Quarter: 2025Q3

REPORT INFORMATION
  Report Type: Report from Study
  Country: US (occurrence: US)
  Receive Date: 20250626
  Receipt Date: 20250718
  Transmission Date: 20251021
  Serious: Yes (Hospitalization, Other)
  Sender: TG THERAPEUTICS
  Company Number: US-TG THERAPEUTICS INC.-TGT005398

PATIENT

DRUGS (2)
  1. UBLITUXIMAB [Suspect]
     Active Substance: UBLITUXIMAB
     Indication: Relapsing multiple sclerosis
     Route: 042
     Dates: start: 20230705, end: 20230705
  2. UBLITUXIMAB [Suspect]
     Active Substance: UBLITUXIMAB
     Route: 042
     Dates: start: 20230719, end: 20230719

REACTIONS (2)
  - Stasis dermatitis [Recovered/Resolved with Sequelae]
  - Necrotising retinitis [Recovered/Resolved with Sequelae]

NARRATIVE: CASE EVENT DATE: 20230101
